FAERS Safety Report 14167433 (Version 5)
Quarter: 2018Q2

REPORT INFORMATION
  Report Type: Spontaneous
  Country: US (occurrence: US)
  Receive Date: 20171107
  Receipt Date: 20180622
  Transmission Date: 20180711
  Serious: Yes (Hospitalization, Other)
  Sender: FDA-Public Use
  Company Number: US-009507513-1711USA002436

PATIENT
  Sex: Female
  Weight: 75.74 kg

DRUGS (1)
  1. NUVARING [Suspect]
     Active Substance: ETHINYL ESTRADIOL\ETONOGESTREL
     Indication: CONTRACEPTION
     Dosage: 0.12-0.015 MG/24 HR, ONE RING AS DIRECTED MONTHLY, IN FOR 3 WEEKS AND OUT FOR 1 WEEK
     Route: 067
     Dates: start: 20150831, end: 20151230

REACTIONS (15)
  - Deep vein thrombosis [Unknown]
  - Muscle spasms [Unknown]
  - Tricuspid valve incompetence [Unknown]
  - Diastolic dysfunction [Unknown]
  - Pain [Unknown]
  - Sinusitis [Unknown]
  - Rheumatoid arthritis [Unknown]
  - Blood pressure increased [Unknown]
  - Nausea [Unknown]
  - Weight decreased [Unknown]
  - Pulmonary embolism [Unknown]
  - Panic disorder [Unknown]
  - Restrictive pulmonary disease [Unknown]
  - Pulmonary hypertension [Unknown]
  - Pneumonia [Unknown]

NARRATIVE: CASE EVENT DATE: 2015
